FAERS Safety Report 9344106 (Version 1)
Quarter: 2013Q2

REPORT INFORMATION
  Report Type: Report from Study
  Country: US (occurrence: US)
  Receive Date: 20130612
  Receipt Date: 20130612
  Transmission Date: 20140414
  Serious: Yes (Death)
  Sender: FDA-Public Use
  Company Number: PHEH2013US012639

PATIENT
  Age: 81 Year
  Sex: Female

DRUGS (1)
  1. TASIGNA [Suspect]
     Dosage: 200 MG, BID
     Route: 048

REACTIONS (1)
  - Death [Fatal]
